FAERS Safety Report 4490536-X (Version None)
Quarter: 2004Q4

REPORT INFORMATION
  Report Type: 
  Country: None (occurrence: None)
  Receive Date: 20041028
  Receipt Date: 20041026
  Transmission Date: 20050328
  Serious: Yes (Death, Life-Threatening, Hospitalization)
  Sender: FDA-Public Use
  Company Number: 2004AP00842

PATIENT
  Age: 63 Year
  Sex: Male

DRUGS (7)
  1. IRESSA [Suspect]
     Indication: NON-SMALL CELL LUNG CANCER
     Dosage: 250 MG DAILY PO
     Route: 048
     Dates: start: 20040128, end: 20040221
  2. NOVONORM [Concomitant]
  3. BONEFOS    ASTRA [Concomitant]
  4. FERROUS SULFATE TAB [Concomitant]
  5. CENTRUM [Concomitant]
  6. ETORICOXIB [Concomitant]
  7. TRAMADOL [Concomitant]

REACTIONS (18)
  - ACUTE MYOCARDIAL INFARCTION [None]
  - ANAEMIA [None]
  - BLOOD CREATININE INCREASED [None]
  - BLOOD POTASSIUM INCREASED [None]
  - BRADYPNOEA [None]
  - CEREBRAL ATROPHY [None]
  - COMA [None]
  - CONDITION AGGRAVATED [None]
  - DEPRESSED LEVEL OF CONSCIOUSNESS [None]
  - ELECTROCARDIOGRAM CHANGE [None]
  - GASTRITIS [None]
  - HAEMATEMESIS [None]
  - HAEMATOCRIT DECREASED [None]
  - HAEMOGLOBIN INCREASED [None]
  - HEPATIC CIRRHOSIS [None]
  - HYPOVOLAEMIA [None]
  - OESOPHAGEAL VARICES HAEMORRHAGE [None]
  - VOMITING [None]
